FAERS Safety Report 23091584 (Version 2)
Quarter: 2023Q4

REPORT INFORMATION
  Report Type: Spontaneous
  Country: US (occurrence: US)
  Receive Date: 20231020
  Receipt Date: 20231031
  Transmission Date: 20240109
  Serious: Yes (Death, Other)
  Sender: FDA-Public Use
  Company Number: US-MALLINCKRODT-MNK202305104

PATIENT
  Age: 63 Year
  Sex: Female

DRUGS (2)
  1. NITRIC OXIDE [Suspect]
     Active Substance: NITRIC OXIDE
     Indication: Cor pulmonale
     Dosage: 20 PPM (RESPIRATORY)
     Route: 055
  2. NITRIC OXIDE [Suspect]
     Active Substance: NITRIC OXIDE
     Dosage: 10 PPM (RESPIRATORY)
     Route: 055

REACTIONS (8)
  - Death [Fatal]
  - Haemolytic anaemia [Unknown]
  - Haemodynamic instability [Unknown]
  - Condition aggravated [Unknown]
  - Methaemoglobinaemia [Unknown]
  - Hypotension [Not Recovered/Not Resolved]
  - Product use issue [Unknown]
  - Product use in unapproved indication [Unknown]
